FAERS Safety Report 8592388 (Version 2)
Quarter: 2012Q4

REPORT INFORMATION
  Report Type: 
  Country: US (occurrence: US)
  Receive Date: 20120601
  Receipt Date: 20120914
  Transmission Date: 20130627
  Serious: Yes (Other)
  Sender: FDA-Public Use
  Company Number: US-ASTRAZENECA-2012SE33437

PATIENT
  Age: 74 Year
  Sex: Female
  Weight: 81.2 kg

DRUGS (32)
  1. SYMBICORT [Suspect]
     Dosage: 160/4.5 MCG, TWO PUFFS, TWO TIMES DAILY
     Route: 055
  2. LIDODERM [Suspect]
     Dosage: PLACE ONE PATCH ONTO SKIN EVERY 12 HOURS
     Route: 061
  3. PRILOSEC [Suspect]
     Route: 048
  4. CRESTOR [Suspect]
     Route: 048
  5. ASPIRIN [Concomitant]
     Route: 048
  6. VENTOLIN HFA [Concomitant]
     Dosage: 108 (90 BASE) MCG/ACT, TWO PUFFS INTO LUNGS EVERY 6 HOURS AS NEEDED
     Route: 055
  7. ZYLOPRIM [Concomitant]
     Route: 048
  8. VITAMIN C [Concomitant]
     Route: 048
  9. ASTELIN [Concomitant]
     Dosage: ONE SPRAY TWO TIMES A DAILY, USE IN EACH NOSTRIL AS DIRECTED
     Route: 045
  10. OS-CAL [Concomitant]
     Route: 048
  11. COREG [Concomitant]
     Route: 048
  12. CO-Q-10 [Concomitant]
     Route: 048
  13. TEARS RENEWED [Concomitant]
     Dosage: ONE DROP THREE TIMES A DAY AS NEEDED
     Route: 047
  14. 65 FE [Concomitant]
     Route: 048
  15. FISH OIL-OMEGA-3-FATTY ACIDS [Concomitant]
     Route: 048
  16. LASIX [Concomitant]
     Route: 048
  17. NEURONTIN [Concomitant]
     Route: 048
  18. GLUCOSAMINE-CHONDROITIN [Concomitant]
     Dosage: 500-400 MG, ONE TABLET THREE TIMES A DAY
     Route: 048
  19. LEVEMIR [Concomitant]
     Dosage: 100 UNIT/ML, INJECT 10 UNITS INTO SKIN NIGHTLY
  20. HUMALOG [Concomitant]
     Dosage: 100 UNIT/ML, INJECT INTO SKIN THREE TIME DAILY
  21. CHRONULAC [Concomitant]
     Dosage: 10 GM/15 ML, TAKE 20 G BY MOUTH THREE TIMES A DAY
     Route: 048
  22. SYNTHROID [Concomitant]
     Route: 048
  23. COZAAR [Concomitant]
     Route: 048
  24. AMITIZA [Concomitant]
     Route: 048
  25. SINGULAIR [Concomitant]
     Route: 048
  26. ALTACE [Concomitant]
     Route: 048
  27. JANUVIA [Concomitant]
     Route: 048
  28. ALDACTONE [Concomitant]
     Route: 048
  29. TESSALON [Concomitant]
     Indication: COUGH
     Dosage: ONE CAPSULE THREE TIMES A DAY , AS NEEDED
     Route: 048
  30. CASCARA SAGRADA [Concomitant]
     Route: 048
  31. ZYRTEC [Concomitant]
     Route: 048
  32. CLEOCIN [Concomitant]
     Route: 048

REACTIONS (19)
  - Cardiac failure [Unknown]
  - Asthma [Unknown]
  - Obstructive airways disorder [Unknown]
  - Wheezing [Unknown]
  - Gastrooesophageal reflux disease [Unknown]
  - Anaemia [Unknown]
  - Back pain [Unknown]
  - Diabetes mellitus [Unknown]
  - Thyroid disorder [Unknown]
  - Generalised oedema [Unknown]
  - Gout [Unknown]
  - Urinary tract infection [Unknown]
  - Neuralgia [Unknown]
  - Renal failure [Unknown]
  - Constipation [Unknown]
  - Blood cholesterol increased [Unknown]
  - Blood triglycerides increased [Unknown]
  - Hypertension [Unknown]
  - Intercepted drug prescribing error [Unknown]
